FAERS Safety Report 8961631 (Version 4)
Quarter: 2013Q2

REPORT INFORMATION
  Report Type: Spontaneous
  Country: US (occurrence: US)
  Receive Date: 20121213
  Receipt Date: 20130422
  Transmission Date: 20140414
  Serious: Yes (Hospitalization, Other)
  Sender: FDA-Public Use
  Company Number: US-BAYER-2012-129280

PATIENT
  Age: 23 Year
  Sex: Female
  Weight: 54.42 kg

DRUGS (4)
  1. YAZ [Suspect]
     Indication: CONTRACEPTION
     Dosage: 3MG/0.02MG
     Route: 048
     Dates: start: 2004, end: 2009
  2. YASMIN [Suspect]
     Dosage: UNK
     Dates: start: 2001, end: 2009
  3. ANTIMIGRAINE PREPARATIONS [Concomitant]
     Dosage: UNK
     Dates: start: 2004
  4. RESPIRATORY SYSTEM [Concomitant]
     Dosage: UNK
     Dates: start: 2004

REACTIONS (14)
  - Thrombosis [None]
  - Convulsion [None]
  - Cervical dysplasia [None]
  - Pain in extremity [None]
  - Disturbance in attention [None]
  - Pain [None]
  - Injury [None]
  - General physical health deterioration [None]
  - Anxiety [None]
  - Anhedonia [None]
  - Emotional distress [None]
  - Dyspnoea [None]
  - Visual impairment [None]
  - Hypoaesthesia [None]
